FAERS Safety Report 7471939-8 (Version None)
Quarter: 2011Q2

REPORT INFORMATION
  Report Type: 
  Country: None (occurrence: None)
  Receive Date: 20110511
  Receipt Date: 20100723
  Transmission Date: 20111010
  Serious: No
  Sender: FDA-Public Use
  Company Number: A0873884A

PATIENT
  Age: 79 Year
  Sex: Female
  Weight: 65 kg

DRUGS (2)
  1. TYKERB [Suspect]
     Dosage: 1000MG PER DAY
     Dates: start: 20100604
  2. HERCEPTIN [Concomitant]
     Route: 042

REACTIONS (2)
  - SKIN EXFOLIATION [None]
  - OEDEMA PERIPHERAL [None]
